FAERS Safety Report 12340743 (Version 1)
Quarter: 2016Q2

REPORT INFORMATION
  Report Type: Spontaneous
  Country: PK (occurrence: PK)
  Receive Date: 20160506
  Receipt Date: 20160506
  Transmission Date: 20160815
  Serious: Yes (Death)
  Sender: FDA-Public Use
  Company Number: PK-ROCHE-1753228

PATIENT
  Age: 83 Year
  Sex: Female

DRUGS (1)
  1. BONVIVA [Suspect]
     Active Substance: IBANDRONATE SODIUM
     Indication: OSTEOPOROSIS
     Dosage: SINGLE DOSE.
     Route: 030
     Dates: start: 201601

REACTIONS (1)
  - Cardiopulmonary failure [Fatal]
